FAERS Safety Report 16096806 (Version 1)
Quarter: 2019Q1

REPORT INFORMATION
  Report Type: Spontaneous
  Country: IT (occurrence: IT)
  Receive Date: 20190320
  Receipt Date: 20190320
  Transmission Date: 20190418
  Serious: Yes (Other)
  Sender: FDA-Public Use
  Company Number: IT-ALLERGAN-1912121US

PATIENT
  Sex: Female

DRUGS (6)
  1. METFORMIN [Concomitant]
     Active Substance: METFORMIN HYDROCHLORIDE
  2. LOBIVON [Concomitant]
     Active Substance: NEBIVOLOL HYDROCHLORIDE
  3. ZYLLT [Concomitant]
     Active Substance: CLOPIDOGREL BISULFATE
  4. PYLERA [Suspect]
     Active Substance: BISMUTH SUBCITRATE POTASSIUM\METRONIDAZOLE\TETRACYCLINE HYDROCHLORIDE
     Indication: PEPTIC ULCER
     Dosage: UNK
     Route: 065
     Dates: start: 20181125, end: 20181125
  5. MICARDIS [Concomitant]
     Active Substance: TELMISARTAN
  6. SINVACOR [Concomitant]
     Active Substance: SIMVASTATIN

REACTIONS (3)
  - Agitation [Unknown]
  - Blood pressure increased [Unknown]
  - Faeces discoloured [Unknown]

NARRATIVE: CASE EVENT DATE: 20181126
